FAERS Safety Report 4382615-2 (Version None)
Quarter: 2004Q2

REPORT INFORMATION
  Report Type: 
  Country: None (occurrence: None)
  Receive Date: 20040622
  Receipt Date: 20040609
  Transmission Date: 20050107
  Serious: Yes (Other)
  Sender: FDA-Public Use
  Company Number: GB-JNJFOC-20040603407

PATIENT
  Age: 3 Month
  Sex: Male

DRUGS (1)
  1. DAKTARIN [Suspect]
     Indication: DRUG USE FOR UNKNOWN INDICATION
     Route: 065

REACTIONS (6)
  - ABNORMAL SENSATION IN EYE [None]
  - CONVERSION DISORDER [None]
  - EYE PAIN [None]
  - EYE REDNESS [None]
  - EYELID DISORDER [None]
  - MEDICATION ERROR [None]
